FAERS Safety Report 9983224 (Version 1)
Quarter: 2014Q1

REPORT INFORMATION
  Report Type: Report from Study
  Country: US (occurrence: US)
  Receive Date: 20140307
  Receipt Date: 20140307
  Transmission Date: 20141002
  Serious: No
  Sender: FDA-Public Use
  Company Number: US-ABBVIE-13P-163-1178251-00

PATIENT
  Age: 56 Year
  Sex: Male

DRUGS (4)
  1. HUMIRA [Suspect]
     Indication: PSORIASIS
     Dates: start: 20131015
  2. SELENIUM SULFIDE [Concomitant]
     Indication: TINEA VERSICOLOUR
     Dosage: LOTION
     Route: 061
  3. EUCERIN [Concomitant]
     Indication: TINEA VERSICOLOUR
  4. FLEXERIL [Concomitant]
     Indication: MUSCLE RELAXANT THERAPY

REACTIONS (7)
  - Incorrect dose administered [Unknown]
  - Injection site erythema [Not Recovered/Not Resolved]
  - Injection site bruising [Recovering/Resolving]
  - Drug ineffective [Not Recovered/Not Resolved]
  - Injection site pain [Recovering/Resolving]
  - Injection site pain [Recovering/Resolving]
  - Rash [Recovering/Resolving]
